FAERS Safety Report 9006477 (Version 2)
Quarter: 2013Q2

REPORT INFORMATION
  Report Type: Spontaneous
  Country: US (occurrence: US)
  Receive Date: 20130110
  Receipt Date: 20130417
  Transmission Date: 20140414
  Serious: Yes (Other)
  Sender: FDA-Public Use
  Company Number: US-PFIZER INC-2013009376

PATIENT
  Age: 37 Year
  Sex: Female
  Weight: 48.53 kg

DRUGS (5)
  1. LYRICA [Suspect]
     Indication: NEURALGIA
     Dosage: 300 MG, 2X/DAY
     Route: 048
     Dates: start: 2007
  2. ZYRTEC-D [Concomitant]
     Indication: HYPERSENSITIVITY
     Dosage: UNK, AS NEEDED
  3. FLONASE [Concomitant]
     Dosage: UNK, AS NEEDED
  4. TIZANIDINE [Concomitant]
     Dosage: UNK
  5. PERCOCET [Concomitant]
     Dosage: UNK

REACTIONS (6)
  - Ovarian cyst [Unknown]
  - Sinusitis [Not Recovered/Not Resolved]
  - Laryngitis [Unknown]
  - Nasopharyngitis [Unknown]
  - Cough [Not Recovered/Not Resolved]
  - Pyrexia [Not Recovered/Not Resolved]
